FAERS Safety Report 16234981 (Version 1)
Quarter: 2019Q2

REPORT INFORMATION
  Report Type: Spontaneous
  Country: NL (occurrence: PL)
  Receive Date: 20190424
  Receipt Date: 20190424
  Transmission Date: 20190711
  Serious: Yes (Hospitalization, Other)
  Sender: FDA-Public Use
  Company Number: PL-FRESENIUS KABI-FK201904715

PATIENT
  Age: 70 Year
  Sex: Male

DRUGS (51)
  1. LINEZOLID (MANUFACTURER UNKNOWN) [Suspect]
     Active Substance: LINEZOLID
     Indication: STAPHYLOCOCCAL SEPSIS
     Dosage: 1200MG/DAY
     Route: 042
     Dates: start: 20140731, end: 20140810
  2. METOCLOPRAMIDE. [Concomitant]
     Active Substance: METOCLOPRAMIDE
     Indication: STAPHYLOCOCCAL SEPSIS
  3. MINERALS NOS/CARBOHYDRATES NOS/PROTEINS NOS/LIPIDS NOS [Concomitant]
     Indication: STAPHYLOCOCCAL SEPSIS
  4. MORPHINE [Concomitant]
     Active Substance: MORPHINE
     Indication: KLEBSIELLA SEPSIS
     Dosage: ONGOING THERAPY
     Route: 058
     Dates: start: 20140731
  5. IMIPENEM [Concomitant]
     Active Substance: IMIPENEM
     Indication: STAPHYLOCOCCAL SEPSIS
     Route: 042
     Dates: start: 20140731, end: 20140808
  6. ONDANSETRON [Concomitant]
     Active Substance: ONDANSETRON
     Indication: STAPHYLOCOCCAL SEPSIS
  7. ONDANSETRON [Concomitant]
     Active Substance: ONDANSETRON
     Indication: KLEBSIELLA SEPSIS
  8. HYOSCINE BUTYLBROMIDE [Concomitant]
     Active Substance: BUTYLSCOPOLAMINE BROMIDE
     Indication: KLEBSIELLA SEPSIS
     Dosage: 2 TIMES 1 AMPOULE A DAY
     Route: 042
     Dates: start: 20140731, end: 20140820
  9. SODIUM GLYCEROPHOSPHATE [Concomitant]
     Active Substance: SODIUM GLYCEROPHOSPHATE
     Indication: ENTEROCOCCAL SEPSIS
     Dosage: 1/2 AMPOULE
     Route: 065
     Dates: start: 20140731, end: 20140824
  10. PANTOPRAZOLE [Concomitant]
     Active Substance: PANTOPRAZOLE
     Indication: KLEBSIELLA SEPSIS
  11. PANTOPRAZOLE [Concomitant]
     Active Substance: PANTOPRAZOLE
     Indication: ENTEROCOCCAL SEPSIS
  12. LINEZOLID (MANUFACTURER UNKNOWN) [Suspect]
     Active Substance: LINEZOLID
     Indication: ENTEROCOCCAL SEPSIS
  13. LINEZOLID (MANUFACTURER UNKNOWN) [Suspect]
     Active Substance: LINEZOLID
     Indication: KLEBSIELLA SEPSIS
  14. POTASSIUM CHLORIDE. [Concomitant]
     Active Substance: POTASSIUM CHLORIDE
     Indication: ENTEROCOCCAL SEPSIS
     Dosage: DOSAGE DEPENDING ON BLOOD LEVELS
     Route: 042
     Dates: start: 20140731
  15. POTASSIUM CHLORIDE. [Concomitant]
     Active Substance: POTASSIUM CHLORIDE
     Indication: STAPHYLOCOCCAL SEPSIS
  16. FUROSEMIDE. [Concomitant]
     Active Substance: FUROSEMIDE
     Indication: STAPHYLOCOCCAL SEPSIS
  17. IMIPENEM [Concomitant]
     Active Substance: IMIPENEM
     Indication: ENTEROCOCCAL SEPSIS
  18. ERGOCALCIFEROL/TOCOPHEROL/RETINOL/PHYTOMENADIONE [Concomitant]
     Indication: ENTEROCOCCAL SEPSIS
     Dosage: 1 AMPOULE
     Route: 042
     Dates: start: 20140731, end: 20140824
  19. GLUCOSE/GLYCINE/ALANINE/SERINE/ASPARTIC ACID/TYROSINE/LEUCINE/METHIONINE/PHENYLALANINE/HISTIDINE/VAL [Concomitant]
     Indication: STAPHYLOCOCCAL SEPSIS
     Dosage: DOSE UNKNOWN
     Route: 042
     Dates: start: 20140731, end: 20140824
  20. SODIUM GLYCEROPHOSPHATE [Concomitant]
     Active Substance: SODIUM GLYCEROPHOSPHATE
     Indication: KLEBSIELLA SEPSIS
  21. FENTANYL. [Concomitant]
     Active Substance: FENTANYL
     Indication: ENTEROCOCCAL SEPSIS
  22. METOCLOPRAMIDE. [Concomitant]
     Active Substance: METOCLOPRAMIDE
     Indication: ENTEROCOCCAL SEPSIS
  23. MORPHINE [Concomitant]
     Active Substance: MORPHINE
     Indication: ENTEROCOCCAL SEPSIS
  24. MORPHINE [Concomitant]
     Active Substance: MORPHINE
     Indication: STAPHYLOCOCCAL SEPSIS
  25. HYOSCINE BUTYLBROMIDE [Concomitant]
     Active Substance: BUTYLSCOPOLAMINE BROMIDE
     Indication: ENTEROCOCCAL SEPSIS
  26. THIAMINE. [Concomitant]
     Active Substance: THIAMINE
     Indication: KLEBSIELLA SEPSIS
     Dosage: DOSE UNKNOWN
     Route: 065
     Dates: start: 20140731, end: 20140824
  27. THIAMINE. [Concomitant]
     Active Substance: THIAMINE
     Indication: STAPHYLOCOCCAL SEPSIS
  28. FENTANYL. [Concomitant]
     Active Substance: FENTANYL
     Indication: STAPHYLOCOCCAL SEPSIS
     Dosage: DOSAGE: 50 UG.H,  ONGOING THERAPY
     Route: 062
     Dates: start: 20140731
  29. METOCLOPRAMIDE. [Concomitant]
     Active Substance: METOCLOPRAMIDE
     Indication: KLEBSIELLA SEPSIS
     Dosage: DOSAGE 2 TIMES 1 AMPOULE A DAY
     Route: 042
     Dates: start: 20140731, end: 20140806
  30. IMIPENEM [Concomitant]
     Active Substance: IMIPENEM
     Indication: KLEBSIELLA SEPSIS
  31. ERGOCALCIFEROL/TOCOPHEROL/RETINOL/PHYTOMENADIONE [Concomitant]
     Indication: STAPHYLOCOCCAL SEPSIS
  32. HYOSCINE BUTYLBROMIDE [Concomitant]
     Active Substance: BUTYLSCOPOLAMINE BROMIDE
     Indication: STAPHYLOCOCCAL SEPSIS
  33. ASCORBIC ACID/PYRIDOXINE HYDROCHLORIDE/BIOTIN/FOLIC ACID/CYANOCOBALAMIN/RIBOFLAVIN/NICOTINAMIDE/CALC [Concomitant]
     Indication: KLEBSIELLA SEPSIS
  34. PANTOPRAZOLE [Concomitant]
     Active Substance: PANTOPRAZOLE
     Indication: STAPHYLOCOCCAL SEPSIS
     Dosage: ONGOING THERAPY
     Route: 042
     Dates: start: 20140731
  35. CALCIUM [Concomitant]
     Active Substance: CALCIUM
     Indication: ENTEROCOCCAL SEPSIS
     Dosage: DOSE: 1 AMPOULE
     Route: 042
     Dates: start: 20140731, end: 20140827
  36. FUROSEMIDE. [Concomitant]
     Active Substance: FUROSEMIDE
     Indication: KLEBSIELLA SEPSIS
  37. ERGOCALCIFEROL/TOCOPHEROL/RETINOL/PHYTOMENADIONE [Concomitant]
     Indication: KLEBSIELLA SEPSIS
  38. ONDANSETRON [Concomitant]
     Active Substance: ONDANSETRON
     Indication: ENTEROCOCCAL SEPSIS
     Dosage: ONGOING THERAPY
     Route: 042
     Dates: start: 20140731
  39. CALCIUM [Concomitant]
     Active Substance: CALCIUM
     Indication: KLEBSIELLA SEPSIS
  40. CALCIUM [Concomitant]
     Active Substance: CALCIUM
     Indication: STAPHYLOCOCCAL SEPSIS
  41. POTASSIUM CHLORIDE. [Concomitant]
     Active Substance: POTASSIUM CHLORIDE
     Indication: KLEBSIELLA SEPSIS
  42. GLUCOSE/GLYCINE/ALANINE/SERINE/ASPARTIC ACID/TYROSINE/LEUCINE/METHIONINE/PHENYLALANINE/HISTIDINE/VAL [Concomitant]
     Indication: KLEBSIELLA SEPSIS
  43. GLUCOSE/GLYCINE/ALANINE/SERINE/ASPARTIC ACID/TYROSINE/LEUCINE/METHIONINE/PHENYLALANINE/HISTIDINE/VAL [Concomitant]
     Indication: ENTEROCOCCAL SEPSIS
  44. FENTANYL. [Concomitant]
     Active Substance: FENTANYL
     Indication: KLEBSIELLA SEPSIS
  45. MINERALS NOS/CARBOHYDRATES NOS/PROTEINS NOS/LIPIDS NOS [Concomitant]
     Indication: ENTEROCOCCAL SEPSIS
     Dosage: 3 TIMES 1 MEASURE; ONGOING THERAPY
     Route: 048
     Dates: start: 20140731
  46. MINERALS NOS/CARBOHYDRATES NOS/PROTEINS NOS/LIPIDS NOS [Concomitant]
     Indication: KLEBSIELLA SEPSIS
  47. THIAMINE. [Concomitant]
     Active Substance: THIAMINE
     Indication: ENTEROCOCCAL SEPSIS
  48. SODIUM GLYCEROPHOSPHATE [Concomitant]
     Active Substance: SODIUM GLYCEROPHOSPHATE
     Indication: STAPHYLOCOCCAL SEPSIS
  49. ASCORBIC ACID/PYRIDOXINE HYDROCHLORIDE/BIOTIN/FOLIC ACID/CYANOCOBALAMIN/RIBOFLAVIN/NICOTINAMIDE/CALC [Concomitant]
     Indication: ENTEROCOCCAL SEPSIS
  50. FUROSEMIDE. [Concomitant]
     Active Substance: FUROSEMIDE
     Indication: ENTEROCOCCAL SEPSIS
     Route: 042
     Dates: start: 20140731, end: 20140802
  51. ASCORBIC ACID/PYRIDOXINE HYDROCHLORIDE/BIOTIN/FOLIC ACID/CYANOCOBALAMIN/RIBOFLAVIN/NICOTINAMIDE/CALC [Concomitant]
     Indication: STAPHYLOCOCCAL SEPSIS
     Dosage: 1 AMPOULE
     Route: 042
     Dates: start: 20140731, end: 20140824

REACTIONS (1)
  - Polyuria [Recovered/Resolved]

NARRATIVE: CASE EVENT DATE: 20140801
